FAERS Safety Report 5589087-0 (Version None)
Quarter: 2007Q4

REPORT INFORMATION
  Report Type: 
  Country: None (occurrence: None)
  Receive Date: 20071212
  Receipt Date: 20070517
  Transmission Date: 20080405
  Serious: Yes (Death)
  Sender: FDA-Public Use
  Company Number: USA-2007-0027445

PATIENT
  Age: 39 Year
  Sex: Male

DRUGS (2)
  1. OXYCODONE HCL [Suspect]
     Indication: PAIN
     Dates: start: 20050901
  2. ANTIBIOTICS [Concomitant]

REACTIONS (4)
  - INADEQUATE ANALGESIA [None]
  - MALAISE [None]
  - OVERDOSE [None]
  - PAIN [None]
